FAERS Safety Report 18996569 (Version 1)
Quarter: 2021Q1

REPORT INFORMATION
  Report Type: Report from Study
  Country: GB (occurrence: GB)
  Receive Date: 20210311
  Receipt Date: 20210311
  Transmission Date: 20210420
  Serious: Yes (Other)
  Sender: FDA-Public Use
  Company Number: NVSC2020GB349117

PATIENT
  Sex: Female

DRUGS (1)
  1. OMNITROPE [Suspect]
     Active Substance: SOMATROPIN
     Indication: HYPOGLYCAEMIA
     Dosage: 4 MG, QD
     Route: 058

REACTIONS (4)
  - Product use in unapproved indication [Unknown]
  - Loss of consciousness [Unknown]
  - Malaise [Unknown]
  - Product storage error [Unknown]
